FAERS Safety Report 25724592 (Version 1)
Quarter: 2025Q3

REPORT INFORMATION
  Report Type: Spontaneous
  Country: PR (occurrence: PR)
  Receive Date: 20250826
  Receipt Date: 20250826
  Transmission Date: 20251021
  Serious: Yes (Hospitalization, Other)
  Sender: COOPERSURGICAL
  Company Number: PR-COOPERSURGICAL, INC.-2025CPS006086

PATIENT
  Sex: Female
  Weight: 61.224 kg

DRUGS (1)
  1. PARAGARD T 380A [Suspect]
     Active Substance: COPPER
     Indication: Contraception
     Route: 015
     Dates: start: 20120101

REACTIONS (13)
  - Uterine leiomyoma [Unknown]
  - Abnormal uterine bleeding [Recovered/Resolved]
  - Pelvic pain [Recovered/Resolved]
  - Device breakage [Unknown]
  - Foreign body in reproductive tract [Unknown]
  - Complication of device removal [Unknown]
  - Emotional distress [Recovered/Resolved]
  - Urinary tract infection [Unknown]
  - Cervicitis [Unknown]
  - Abdominal discomfort [Unknown]
  - Pyrexia [Unknown]
  - Device dislocation [Unknown]
  - Abdominal pain [Unknown]

NARRATIVE: CASE EVENT DATE: 20170101
